FAERS Safety Report 5001711-X (Version None)
Quarter: 2006Q2

REPORT INFORMATION
  Report Type: 
  Country: None (occurrence: None)
  Receive Date: 20060515
  Receipt Date: 20060502
  Transmission Date: 20061013
  Serious: Yes (Hospitalization)
  Sender: FDA-Public Use
  Company Number: PHFR2006GB01593

PATIENT
  Age: 14 Year
  Sex: Female
  Weight: 33 kg

DRUGS (5)
  1. CYCLOSPORINE [Suspect]
     Indication: CROHN'S DISEASE
     Dosage: 65 MG, BID
     Route: 042
  2. CYCLOSPORINE [Suspect]
     Route: 042
     Dates: start: 20060410
  3. METHYLPREDNISOLONE [Concomitant]
     Dosage: 24 MG, BID
     Route: 042
  4. OMEPRAZOLE [Concomitant]
     Dosage: 10 MG, BID
     Route: 042
     Dates: start: 20060413
  5. OMEPRAZOLE [Concomitant]
     Route: 048

REACTIONS (3)
  - AGITATION [None]
  - CONFUSIONAL STATE [None]
  - DRUG LEVEL INCREASED [None]
